FAERS Safety Report 9071510 (Version 1)
Quarter: 2013Q1

REPORT INFORMATION
  Report Type: Report from Study
  Country: US (occurrence: US)
  Receive Date: 20130129
  Receipt Date: 20130129
  Transmission Date: 20140127
  Serious: No
  Sender: FDA-Public Use
  Company Number: US-ABBOTT-12P-163-0929789-00

PATIENT
  Age: 58 None
  Sex: Male
  Weight: 72.64 kg

DRUGS (18)
  1. HUMIRA 40 MG/ 0.8 ML PRE-FILLED SYRINGE [Suspect]
     Indication: CROHN^S DISEASE
     Dosage: LOADING DOSE
     Route: 058
     Dates: start: 20120423, end: 20120423
  2. HUMIRA 40 MG/ 0.8 ML PRE-FILLED SYRINGE [Suspect]
     Dosage: LOADING DOSE
     Dates: start: 20120420, end: 20120420
  3. PREDNISONE [Concomitant]
     Indication: CROHN^S DISEASE
  4. MERCAPTOPURINE [Concomitant]
     Indication: CROHN^S DISEASE
  5. BENTYL [Concomitant]
     Indication: CROHN^S DISEASE
  6. BENTYL [Concomitant]
     Indication: MUSCLE SPASMS
  7. IMODIUM [Concomitant]
     Indication: CROHN^S DISEASE
  8. VITAMIN B 12 [Concomitant]
     Indication: VITAMIN B12 DEFICIENCY
  9. FOLIC ACID [Concomitant]
     Indication: CROHN^S DISEASE
  10. FOLIC ACID [Concomitant]
     Indication: MALABSORPTION
  11. ATIVAN [Concomitant]
     Indication: ANXIETY
  12. ATIVAN [Concomitant]
     Indication: INSOMNIA
  13. NASONEX [Concomitant]
     Indication: HYPERSENSITIVITY
  14. COMBIGAN [Concomitant]
     Indication: GLAUCOMA
     Route: 047
     Dates: start: 201112
  15. MULTIVITAMIN [Concomitant]
     Indication: SUPPLEMENTATION THERAPY
  16. IRON [Concomitant]
     Indication: SUPPLEMENTATION THERAPY
  17. FISH OIL [Concomitant]
     Indication: SUPPLEMENTATION THERAPY
  18. LUMIGAN [Concomitant]
     Indication: GLAUCOMA
     Dates: start: 201112

REACTIONS (4)
  - Headache [Recovered/Resolved]
  - Influenza like illness [Recovered/Resolved]
  - Injection site pain [Recovered/Resolved]
  - Pain [Recovered/Resolved]
